FAERS Safety Report 15720647 (Version 1)
Quarter: 2018Q4

REPORT INFORMATION
  Report Type: Report from Study
  Country: US (occurrence: US)
  Receive Date: 20181213
  Receipt Date: 20181213
  Transmission Date: 20190205
  Serious: Yes (Hospitalization, Other)
  Sender: FDA-Public Use
  Company Number: US-GILEAD-2018-0380169

PATIENT
  Age: 22 Year
  Sex: Female

DRUGS (29)
  1. LORAZEPAM. [Concomitant]
     Active Substance: LORAZEPAM
  2. VITAMIN K NOS [Concomitant]
     Active Substance: DIETARY SUPPLEMENT\ MENAQUINONE 6\PHYTONADIONE
  3. PULMOZYME [Concomitant]
     Active Substance: DORNASE ALFA
  4. CULTURELLE [Concomitant]
     Active Substance: LACTOBACILLUS RHAMNOSUS
  5. SALINE [SODIUM CHLORIDE] [Concomitant]
     Active Substance: SODIUM CHLORIDE
  6. VITAMIN D3 [Concomitant]
     Active Substance: CHOLECALCIFEROL
  7. VITAMIN E [TOCOPHEROL] [Concomitant]
  8. ZOLOFT [Concomitant]
     Active Substance: SERTRALINE HYDROCHLORIDE
  9. MEPHYTON [Concomitant]
     Active Substance: PHYTONADIONE
  10. VITAMIN C [Concomitant]
     Active Substance: ASCORBIC ACID
  11. FLONASE [Concomitant]
     Active Substance: FLUTICASONE PROPIONATE
  12. NOVOLOG [Concomitant]
     Active Substance: INSULIN ASPART
  13. CALCIUM CARBONATE. [Concomitant]
     Active Substance: CALCIUM CARBONATE
  14. MAGNESIUM [Concomitant]
     Active Substance: MAGNESIUM
  15. OMEGA 3 [FISH OIL] [Concomitant]
  16. PREDNISONE. [Concomitant]
     Active Substance: PREDNISONE
  17. ZENPEP [Concomitant]
     Active Substance: PANCRELIPASE AMYLASE\PANCRELIPASE LIPASE\PANCRELIPASE PROTEASE
  18. COQ10 COMPLEX [Concomitant]
  19. GINSENG NOS [Concomitant]
     Active Substance: HERBALS
  20. MELATONIN [Concomitant]
     Active Substance: MELATONIN
  21. ONDANSETRON [Concomitant]
     Active Substance: ONDANSETRON
  22. SYMDEKO [Concomitant]
     Active Substance: IVACAFTOR\TEZACAFTOR
  23. AZITHROMYCIN ANHYDROUS. [Concomitant]
     Active Substance: AZITHROMYCIN ANHYDROUS
  24. LANTUS [Concomitant]
     Active Substance: INSULIN GLARGINE
  25. MINOCYCLINE [Concomitant]
     Active Substance: MINOCYCLINE\MINOCYCLINE HYDROCHLORIDE
  26. VITAMIN D [Concomitant]
     Active Substance: CHOLECALCIFEROL
  27. AZTREONAM LYSINE [Suspect]
     Active Substance: AZTREONAM LYSINE
     Indication: CYSTIC FIBROSIS
     Dosage: 75 MG, TID
     Route: 055
     Dates: start: 20141114
  28. ALBUTEROL [SALBUTAMOL] [Concomitant]
     Active Substance: ALBUTEROL
  29. LEVOFLOXACIN. [Concomitant]
     Active Substance: LEVOFLOXACIN

REACTIONS (2)
  - Cystic fibrosis respiratory infection suppression [Unknown]
  - Sinus operation [Unknown]

NARRATIVE: CASE EVENT DATE: 20181123
